FAERS Safety Report 13143432 (Version 2)
Quarter: 2017Q1

REPORT INFORMATION
  Report Type: Spontaneous
  Country: FR (occurrence: FR)
  Receive Date: 20170124
  Receipt Date: 20170215
  Transmission Date: 20170428
  Serious: Yes (Death, Life-Threatening, Hospitalization, Other)
  Sender: FDA-Public Use
  Company Number: FR-PFIZER INC-2017027609

PATIENT
  Age: 87 Year
  Sex: Female

DRUGS (2)
  1. ALTIZIDE/SPIRONOLACTONE [Suspect]
     Active Substance: ALTHIAZIDE\SPIRONOLACTONE
     Indication: HYPERTENSION
     Dosage: [ALTIZIDE 15MG/ SPIRONOLACTONE 25MG], 1X/DAY
     Route: 048
     Dates: end: 20170110
  2. LYRICA [Suspect]
     Active Substance: PREGABALIN
     Indication: POST HERPETIC NEURALGIA
     Dosage: 100 MG, 3X/DAY
     Route: 048
     Dates: end: 20170110

REACTIONS (18)
  - Hepatic encephalopathy [Unknown]
  - Sinus tachycardia [Unknown]
  - Brain natriuretic peptide increased [Unknown]
  - Cholelithiasis [Unknown]
  - Asthenia [Unknown]
  - Cardiac failure [Fatal]
  - Pleural effusion [Unknown]
  - Hepatic steatosis [Unknown]
  - Malaise [Unknown]
  - Renal failure [Unknown]
  - Liver function test abnormal [Unknown]
  - Bronchial disorder [Unknown]
  - Aortic arteriosclerosis [Unknown]
  - General physical health deterioration [Unknown]
  - Dehydration [Unknown]
  - Inflammation [Unknown]
  - Disseminated intravascular coagulation [Fatal]
  - Abdominal pain [Unknown]

NARRATIVE: CASE EVENT DATE: 20160112
